FAERS Safety Report 8064936-5 (Version None)
Quarter: 2012Q1

REPORT INFORMATION
  Report Type: 
  Country: None (occurrence: None)
  Receive Date: 20120124
  Receipt Date: 20120113
  Transmission Date: 20120608
  Serious: No
  Sender: FDA-Public Use
  Company Number: US-BIOGENIDEC-2012BI001850

PATIENT
  Sex: Female

DRUGS (4)
  1. TYSABRI [Suspect]
     Indication: MULTIPLE SCLEROSIS
     Route: 042
     Dates: start: 20100405, end: 20100405
  2. TYSABRI [Suspect]
     Route: 042
     Dates: start: 20110307
  3. AVONEX [Concomitant]
     Route: 030
     Dates: end: 20070905
  4. AVONEX [Concomitant]
     Indication: MULTIPLE SCLEROSIS
     Route: 030
     Dates: start: 20041006

REACTIONS (4)
  - MEMORY IMPAIRMENT [None]
  - COGNITIVE DISORDER [None]
  - PAIN [None]
  - ABDOMINAL PAIN UPPER [None]
